FAERS Safety Report 19427180 (Version 1)
Quarter: 2021Q2

REPORT INFORMATION
  Report Type: Spontaneous
  Country: US (occurrence: US)
  Receive Date: 20210616
  Receipt Date: 20210616
  Transmission Date: 20210717
  Serious: Yes (Hospitalization)
  Sender: FDA-Public Use
  Company Number: None

PATIENT
  Age: 73 Year
  Sex: Female

DRUGS (1)
  1. TEMODAR [Suspect]
     Active Substance: TEMOZOLOMIDE
     Dosage: 300MG DAILY FOR 5 DAYS OTHER ORAL
     Route: 048
     Dates: start: 202102

REACTIONS (1)
  - Seizure [None]

NARRATIVE: CASE EVENT DATE: 20210616
